FAERS Safety Report 5588533-6 (Version None)
Quarter: 2008Q1

REPORT INFORMATION
  Report Type: 
  Country: None (occurrence: None)
  Receive Date: 20080111
  Receipt Date: 20080108
  Transmission Date: 20080703
  Serious: Yes (Hospitalization, Other)
  Sender: FDA-Public Use
  Company Number: GBWYE401204FEB05

PATIENT
  Sex: Male
  Weight: 89.8 kg

DRUGS (1)
  1. RAPAMUNE [Suspect]
     Indication: PROPHYLAXIS AGAINST TRANSPLANT REJECTION
     Route: 048
     Dates: start: 20041124

REACTIONS (2)
  - KIDNEY TRANSPLANT REJECTION [None]
  - RENAL IMPAIRMENT [None]
